FAERS Safety Report 13802069 (Version 1)
Quarter: 2017Q3

REPORT INFORMATION
  Report Type: Report from Study
  Country: US (occurrence: US)
  Receive Date: 20170727
  Receipt Date: 20170727
  Transmission Date: 20171127
  Serious: Yes (Death, Other)
  Sender: FDA-Public Use
  Company Number: US-MYLANLABS-2017M1044690

PATIENT

DRUGS (11)
  1. CALCIUM [Concomitant]
     Active Substance: CALCIUM
     Indication: PRODUCT USED FOR UNKNOWN INDICATION
     Route: 048
  2. DEXAMETHASONE. [Concomitant]
     Active Substance: DEXAMETHASONE
     Indication: PRODUCT USED FOR UNKNOWN INDICATION
     Dosage: FROM DAY -9 TO -2
     Route: 042
  3. GEMCITABINE [Suspect]
     Active Substance: GEMCITABINE\GEMCITABINE HYDROCHLORIDE
     Indication: PLASMA CELL MYELOMA
     Dosage: 75 MG/M2 ON DAYS -8 AND -3 AS A LOADING BOLUS
     Route: 050
  4. PHENYTOIN. [Concomitant]
     Active Substance: PHENYTOIN
     Indication: PRODUCT USED FOR UNKNOWN INDICATION
     Dosage: 300 TO 600 MG/DAY FROM DAY -9 TO -4
     Route: 065
  5. BUSULFAN. [Suspect]
     Active Substance: BUSULFAN
     Indication: PLASMA CELL MYELOMA
     Dosage: 32 MG/M2 FOR 60 MINUTES
     Route: 042
  6. BUSULFAN. [Suspect]
     Active Substance: BUSULFAN
     Dosage: FROM DAYS -8 TO -5 OVER 3 HOURS, TARGETING AUC 4000 MICROMOL/L PER MIN
     Route: 050
  7. BUSULFAN. [Suspect]
     Active Substance: BUSULFAN
     Dosage: AFTER FIRST DOSE TARGETING AUC 16000 MICROMOL/L PER MIN
     Route: 050
  8. GLUTAMINE [Concomitant]
     Active Substance: GLUTAMINE
     Indication: PRODUCT USED FOR UNKNOWN INDICATION
     Route: 048
  9. GEMCITABINE [Suspect]
     Active Substance: GEMCITABINE\GEMCITABINE HYDROCHLORIDE
     Dosage: CONTINUOUS INFUSION OF 1800 MG/M2 OVER 3 H AT 10 MG/M2 PER MIN
     Route: 050
  10. PALIFERMIN [Concomitant]
     Active Substance: PALIFERMIN
     Indication: PRODUCT USED FOR UNKNOWN INDICATION
     Route: 048
  11. MELPHALAN. [Suspect]
     Active Substance: MELPHALAN
     Indication: PLASMA CELL MYELOMA
     Dosage: 60 MG/M2 PER DAY OVER 30 MIN ON DAYS -3 AND -2
     Route: 050

REACTIONS (1)
  - Pneumonia respiratory syncytial viral [Fatal]
